FAERS Safety Report 24831386 (Version 1)
Quarter: 2025Q1

REPORT INFORMATION
  Report Type: Spontaneous
  Country: US (occurrence: US)
  Receive Date: 20250110
  Receipt Date: 20250110
  Transmission Date: 20250408
  Serious: No
  Sender: SANOFI AVENTIS
  Company Number: US-SA-2025SA008054

PATIENT
  Age: 30 Year
  Sex: Female

DRUGS (11)
  1. DUPIXENT [Suspect]
     Active Substance: DUPILUMAB
     Indication: Dermatitis atopic
     Dosage: 300 MG, QOW
     Route: 058
     Dates: start: 20241004
  2. AMBRISENTAN [Concomitant]
     Active Substance: AMBRISENTAN
  3. BUSPIRONE HCL [Concomitant]
     Active Substance: BUSPIRONE HYDROCHLORIDE
  4. CLARITIN [Concomitant]
     Active Substance: LORATADINE
  5. FLUTICASONE [Concomitant]
     Active Substance: FLUTICASONE
  6. HYDROSKIN [Concomitant]
     Active Substance: HYDROCORTISONE
  7. INDOMETHACIN [Concomitant]
     Active Substance: INDOMETHACIN
  8. PREDNISONE [Concomitant]
     Active Substance: PREDNISONE
  9. PROPRANOLOL [Concomitant]
     Active Substance: PROPRANOLOL HYDROCHLORIDE
  10. SILDENAFIL [Concomitant]
     Active Substance: SILDENAFIL
  11. SUMATRIPTAN [Concomitant]
     Active Substance: SUMATRIPTAN

REACTIONS (6)
  - Discomfort [Not Recovered/Not Resolved]
  - Sleep disorder due to a general medical condition [Not Recovered/Not Resolved]
  - Injection site pain [Not Recovered/Not Resolved]
  - Rash [Not Recovered/Not Resolved]
  - Dermatitis atopic [Not Recovered/Not Resolved]
  - Drug ineffective [Unknown]
